FAERS Safety Report 18423924 (Version 1)
Quarter: 2020Q4

REPORT INFORMATION
  Report Type: Spontaneous
  Country: VE (occurrence: VE)
  Receive Date: 20201025
  Receipt Date: 20201025
  Transmission Date: 20210114
  Serious: Yes (Death, Other)
  Sender: FDA-Public Use
  Company Number: NVSC2020VE285507

PATIENT
  Age: 26 Year
  Sex: Female

DRUGS (1)
  1. GLIVEC [Suspect]
     Active Substance: IMATINIB MESYLATE
     Indication: GASTROINTESTINAL STROMAL TUMOUR
     Dosage: 800 MG (8 X 100 MG TABLETS)
     Route: 065

REACTIONS (7)
  - Malignant neoplasm progression [Unknown]
  - General physical health deterioration [Unknown]
  - Peritonitis [Unknown]
  - Renal disorder [Unknown]
  - Death [Fatal]
  - Effusion [Unknown]
  - Gastrointestinal stromal tumour [Unknown]

NARRATIVE: CASE EVENT DATE: 20201015
